FAERS Safety Report 6411056-9 (Version None)
Quarter: 2009Q4

REPORT INFORMATION
  Report Type: 
  Country: None (occurrence: None)
  Receive Date: 20091021
  Receipt Date: 20091021
  Transmission Date: 20100525
  Serious: Yes (Hospitalization)
  Sender: FDA-Public Use
  Company Number: None

PATIENT
  Sex: Female
  Weight: 85.2762 kg

DRUGS (2)
  1. ISONIAZID [Suspect]
     Indication: LATENT TUBERCULOSIS
     Dosage: 300 MG ONCE DAILY PO
     Route: 048
     Dates: start: 20090911, end: 20090911
  2. ISONIAZID [Suspect]
     Indication: LATENT TUBERCULOSIS
     Dosage: 300 MG ONCE DAILY PO
     Route: 048
     Dates: start: 20090922, end: 20090922

REACTIONS (10)
  - BLISTER [None]
  - DIZZINESS [None]
  - HEADACHE [None]
  - INJECTION SITE PRURITUS [None]
  - MALAISE [None]
  - NAUSEA [None]
  - OEDEMA [None]
  - RASH [None]
  - SKIN REACTION [None]
  - VOMITING [None]
